APPROVED DRUG PRODUCT: NORITATE
Active Ingredient: METRONIDAZOLE
Strength: 1%
Dosage Form/Route: CREAM;TOPICAL
Application: N020743 | Product #001
Applicant: BAUSCH HEALTH US LLC
Approved: Sep 26, 1997 | RLD: Yes | RS: Yes | Type: RX